FAERS Safety Report 7679788-2 (Version None)
Quarter: 2011Q3

REPORT INFORMATION
  Report Type: 
  Country: None (occurrence: None)
  Receive Date: 20110812
  Receipt Date: 20110709
  Transmission Date: 20111222
  Serious: No
  Sender: FDA-Public Use
  Company Number: US-BAYER-2011-060419

PATIENT
  Sex: Male

DRUGS (3)
  1. IBUPROFEN [Concomitant]
     Route: 048
  2. EXTRA STRENGTH ORAGEL [Concomitant]
     Route: 061
  3. ALEVE (CAPLET) [Suspect]
     Indication: TOOTHACHE
     Route: 048

REACTIONS (1)
  - TOOTHACHE [None]
